FAERS Safety Report 9217778 (Version 2)
Quarter: 2013Q2

REPORT INFORMATION
  Report Type: Spontaneous
  Country: US (occurrence: US)
  Receive Date: 20130408
  Receipt Date: 20130411
  Transmission Date: 20140414
  Serious: No
  Sender: FDA-Public Use
  Company Number: US-009507513-1304USA000577

PATIENT
  Age: 70 Year
  Sex: Male

DRUGS (21)
  1. NASONEX [Suspect]
     Indication: INCREASED UPPER AIRWAY SECRETION
     Dosage: 2 DF (SPRAYS), QD
     Route: 045
     Dates: start: 201303
  2. METOPROLOL [Concomitant]
  3. LISINOPRIL [Concomitant]
  4. ASPIRIN [Concomitant]
     Dosage: BABY ASPIRIN
  5. OMEGA-3 MARINE TRIGLYCERIDES [Concomitant]
     Dosage: FISH OIL
  6. CALCIUM CITRATE (+) VITAMIN D (UNSPECIFIED) [Concomitant]
  7. TRAZODONE HYDROCHLORIDE [Concomitant]
  8. PANTOPRAZOLE [Concomitant]
  9. CYMBALTA [Concomitant]
  10. LORAZEPAM [Concomitant]
  11. HUMIRA [Concomitant]
     Dosage: INJECTION 40
  12. PREDNISONE [Concomitant]
  13. METHOTREXATE [Concomitant]
  14. LEUCOVORIN [Concomitant]
  15. NIACINAMIDE [Concomitant]
     Dosage: VITAMIN B3
  16. SUDAFED [Concomitant]
  17. FEXOFENADINE HYDROCHLORIDE [Concomitant]
  18. RANITIDINE [Concomitant]
  19. ZOLPIDEM TARTRATE [Concomitant]
     Dosage: UNK, PRN
  20. ATORVASTATIN [Concomitant]
  21. TRAMADOL HYDROCHLORIDE [Concomitant]

REACTIONS (4)
  - Nasal ulcer [Not Recovered/Not Resolved]
  - Headache [Not Recovered/Not Resolved]
  - Epistaxis [Recovered/Resolved]
  - Sinus disorder [Unknown]
